FAERS Safety Report 14604542 (Version 2)
Quarter: 2018Q1

REPORT INFORMATION
  Report Type: Spontaneous
  Country: SE (occurrence: SE)
  Receive Date: 20180306
  Receipt Date: 20180315
  Transmission Date: 20180509
  Serious: Yes (Other)
  Sender: FDA-Public Use
  Company Number: SE-PFIZER INC-2018092301

PATIENT
  Age: 50 Year
  Sex: Female
  Weight: 84 kg

DRUGS (2)
  1. METHOTREXATE ORION [Suspect]
     Active Substance: METHOTREXATE
     Indication: RHEUMATOID ARTHRITIS
     Dosage: 15 MG, WEEKLY
     Route: 048
     Dates: start: 20171203
  2. PRONAXEN [Concomitant]
     Active Substance: NAPROXEN
     Dosage: UNK
     Dates: start: 20170801

REACTIONS (2)
  - Liver function test increased [Recovered/Resolved with Sequelae]
  - Injury corneal [Recovered/Resolved with Sequelae]

NARRATIVE: CASE EVENT DATE: 201712
